FAERS Safety Report 9557575 (Version 1)
Quarter: 2013Q3

REPORT INFORMATION
  Report Type: Spontaneous
  Country: US (occurrence: None)
  Receive Date: 20130724
  Receipt Date: 20130724
  Transmission Date: 20140515
  Serious: Yes (Hospitalization)
  Sender: FDA-Public Use
  Company Number: PHEH2012US022925

PATIENT
  Age: 19 Year
  Sex: Male

DRUGS (2)
  1. GLEEVEC [Suspect]
     Indication: LYMPHOCYTIC LEUKAEMIA
     Route: 048
     Dates: start: 20121030
  2. CHEMOTHERAPEUTICS NOS [Concomitant]

REACTIONS (2)
  - Platelet count decreased [None]
  - Haemoglobin decreased [None]
